FAERS Safety Report 5164455-X (Version None)
Quarter: 2006Q4

REPORT INFORMATION
  Report Type: 
  Country: None (occurrence: None)
  Receive Date: 20061205
  Receipt Date: 20060425
  Transmission Date: 20070319
  Serious: Yes (Other)
  Sender: FDA-Public Use
  Company Number: BR-ROCHE-445840

PATIENT
  Sex: Male

DRUGS (2)
  1. ROACUTAN [Suspect]
     Indication: ACNE
     Dates: end: 20060110
  2. UNSPECIFIED DRUG [Concomitant]
     Indication: CONTRACEPTION
     Dates: start: 20060226, end: 20060227

REACTIONS (4)
  - DRUG EXPOSURE BEFORE PREGNANCY [None]
  - NO ADVERSE EFFECT [None]
  - NORMAL NEWBORN [None]
  - PREGNANCY AFTER POST COITAL CONTRACEPTION [None]
